FAERS Safety Report 6925438-X (Version None)
Quarter: 2010Q3

REPORT INFORMATION
  Report Type: 
  Country: None (occurrence: None)
  Receive Date: 20100816
  Receipt Date: 20100808
  Transmission Date: 20110219
  Serious: Yes (Other)
  Sender: FDA-Public Use
  Company Number: BR-ROCHE-705915

PATIENT
  Sex: Female
  Weight: 57 kg

DRUGS (2)
  1. ROACUTAN [Suspect]
     Indication: ACNE
     Route: 048
     Dates: start: 20100401, end: 20100501
  2. SELENE [Concomitant]
     Indication: CONTRACEPTION

REACTIONS (2)
  - ABORTION SPONTANEOUS [None]
  - PREMATURE SEPARATION OF PLACENTA [None]
